FAERS Safety Report 6970952-4 (Version None)
Quarter: 2010Q3

REPORT INFORMATION
  Report Type: 
  Country: None (occurrence: None)
  Receive Date: 20100908
  Receipt Date: 20100902
  Transmission Date: 20110219
  Serious: Yes (Other)
  Sender: FDA-Public Use
  Company Number: CA-JNJFOC-20100900727

PATIENT
  Age: 45 Year
  Sex: Female

DRUGS (2)
  1. ELMIRON [Suspect]
     Indication: URINARY INCONTINENCE
     Route: 065
  2. UNSPECIFIED ASTHMA INHALER [Concomitant]
     Route: 065

REACTIONS (6)
  - CHROMATURIA [None]
  - CONFUSIONAL STATE [None]
  - DIZZINESS [None]
  - FATIGUE [None]
  - OROPHARYNGEAL PAIN [None]
  - SWOLLEN TONGUE [None]
